FAERS Safety Report 17671268 (Version 4)
Quarter: 2023Q1

REPORT INFORMATION
  Report Type: Report from Study
  Country: GB (occurrence: GB)
  Receive Date: 20200415
  Receipt Date: 20230220
  Transmission Date: 20230418
  Serious: Yes (Other)
  Sender: FDA-Public Use
  Company Number: GB-ROCHE-1758855

PATIENT
  Age: 69 Year
  Sex: Female

DRUGS (27)
  1. DOCETAXEL [Suspect]
     Active Substance: DOCETAXEL
     Indication: Breast cancer metastatic
     Dosage: 130 MILLIGRAM, QW,NUMBER OF CYCLES: 6
     Route: 042
     Dates: start: 20151231, end: 20151231
  2. DOCETAXEL [Suspect]
     Active Substance: DOCETAXEL
     Dosage: 100 MILLIGRAM, Q3W, NUMBER OF CYCLES: 6
     Route: 042
     Dates: start: 20160125, end: 20160401
  3. DOCETAXEL [Suspect]
     Active Substance: DOCETAXEL
     Dosage: 96 MILLIGRAM, Q3W
     Route: 042
     Dates: start: 20160425, end: 20160425
  4. ANASTROZOLE [Suspect]
     Active Substance: ANASTROZOLE
     Indication: Breast cancer metastatic
     Dosage: 1 MILLIGRAM, QD
     Route: 048
     Dates: start: 20151123, end: 20151231
  5. ANASTROZOLE [Suspect]
     Active Substance: ANASTROZOLE
     Dosage: 1 MILLIGRAM, QD
     Route: 048
     Dates: start: 20160525
  6. TRASTUZUMAB [Suspect]
     Active Substance: TRASTUZUMAB
     Indication: Breast cancer metastatic
     Dosage: 525 MILLIGRAM, Q3W, LOADING DOSE
     Route: 042
     Dates: start: 20151230, end: 20151230
  7. TRASTUZUMAB [Suspect]
     Active Substance: TRASTUZUMAB
     Dosage: MAINTANANCE DOSE
     Route: 042
     Dates: start: 20191128, end: 20191219
  8. TRASTUZUMAB [Suspect]
     Active Substance: TRASTUZUMAB
     Dosage: 504 MILLIGRAM, Q3W, MAINTANANCE DOSE
     Route: 042
     Dates: start: 20191128, end: 20191219
  9. TRASTUZUMAB [Suspect]
     Active Substance: TRASTUZUMAB
     Dosage: 394 MILLIGRAM, Q3W (MAINTANANCE DOSE))
     Route: 042
     Dates: start: 20160125, end: 20190426
  10. TRASTUZUMAB [Suspect]
     Active Substance: TRASTUZUMAB
     Dosage: 504 MILLIGRAM, Q3W
     Route: 042
     Dates: start: 20191219
  11. TRASTUZUMAB [Suspect]
     Active Substance: TRASTUZUMAB
     Dosage: 378 MILLIGRAM, Q3W
     Route: 042
     Dates: start: 20191219
  12. TRASTUZUMAB [Suspect]
     Active Substance: TRASTUZUMAB
     Dosage: 504 MILLIGRAM, Q3W (MAINTANANCE DOSE)
     Route: 042
     Dates: start: 20191128, end: 20191219
  13. TRASTUZUMAB [Suspect]
     Active Substance: TRASTUZUMAB
     Dosage: 525 MILLIGRAM, Q3W
     Route: 042
     Dates: start: 20160125, end: 20190426
  14. PERTUZUMAB [Suspect]
     Active Substance: PERTUZUMAB
     Indication: Breast cancer metastatic
     Dosage: 840 MILLIGRAM, Q3W, LOADING DOSE
     Route: 042
     Dates: start: 20151230, end: 20151230
  15. PERTUZUMAB [Suspect]
     Active Substance: PERTUZUMAB
     Dosage: 420 MILLIGRAM, Q3W, MAINTANANCE DOSE
     Route: 042
     Dates: start: 20160125, end: 20160426
  16. TAXOTERE [Suspect]
     Active Substance: DOCETAXEL
     Indication: Breast cancer metastatic
     Dosage: 130 MILLIGRAM, Q3W
     Route: 042
     Dates: start: 20151231, end: 20151231
  17. TAXOTERE [Suspect]
     Active Substance: DOCETAXEL
     Dosage: 130 MILLIGRAM, Q3W
     Route: 042
     Dates: start: 20160125, end: 20160401
  18. TAXOTERE [Suspect]
     Active Substance: DOCETAXEL
     Dosage: 96 MILLIGRAM, Q3W
     Route: 042
     Dates: start: 20160425, end: 20160425
  19. RANITIDINE [Concomitant]
     Active Substance: RANITIDINE
     Indication: Gastrooesophageal reflux disease
     Dosage: 150 MILLIGRAM, BID
     Route: 048
  20. RANITIDINE [Concomitant]
     Active Substance: RANITIDINE
     Dosage: 0.5 DOSAGE FORM, QD (0.5 DF (150 MG), QD)
     Route: 048
  21. ESTRIOL [Concomitant]
     Active Substance: ESTRIOL
     Indication: Dyspareunia
     Dosage: CREAM, START 04-AUG-2016
     Route: 061
  22. LORATADINE [Concomitant]
     Active Substance: LORATADINE
     Dosage: 10 MILLIGRAM, QD
     Route: 048
  23. RAMIPRIL [Concomitant]
     Active Substance: RAMIPRIL
     Indication: Ejection fraction decreased
     Dosage: 5 MILLIGRAM, QD, START ??-JUL-2019
     Route: 048
  24. APIXABAN [Concomitant]
     Active Substance: APIXABAN
     Indication: Atrial fibrillation
     Dosage: UNK (0.5 UNK, QD ), START 16-SEP-2016
     Route: 048
     Dates: end: 20200916
  25. ARIMIDEX [Concomitant]
     Active Substance: ANASTROZOLE
     Indication: Breast cancer metastatic
     Dosage: 1 MILLIGRAM, QD, START 28-OCT-2016
     Route: 048
  26. BISOPROLOL [Concomitant]
     Active Substance: BISOPROLOL
     Indication: Atrial fibrillation
     Dosage: 1.25 MILLIGRAM, QD, START 07-DEC-2017
     Route: 048
  27. FENBID [Concomitant]
     Indication: Arthralgia
     Dosage: UNK (0.33 UNK), START 28-OCT-2016
     Route: 061

REACTIONS (9)
  - Atrial fibrillation [Unknown]
  - Neuropathy peripheral [Not Recovered/Not Resolved]
  - Neutropenic sepsis [Recovered/Resolved]
  - Dermatitis [Not Recovered/Not Resolved]
  - Stomatitis [Recovered/Resolved]
  - Fatigue [Not Recovered/Not Resolved]
  - Arthralgia [Unknown]
  - Alopecia [Recovered/Resolved]
  - Ejection fraction decreased [Recovered/Resolved]

NARRATIVE: CASE EVENT DATE: 20160101
